FAERS Safety Report 4476823-X (Version None)
Quarter: 2004Q4

REPORT INFORMATION
  Report Type: 
  Country: None (occurrence: None)
  Receive Date: 20041013
  Receipt Date: 20041006
  Transmission Date: 20050328
  Serious: Yes (Hospitalization, Other)
  Sender: FDA-Public Use
  Company Number: 200420545BWH

PATIENT
  Age: 62 Year
  Sex: Female

DRUGS (4)
  1. TRASYLOL [Suspect]
     Indication: AORTIC ANEURYSM REPAIR
     Dosage: 1 ML, TOTAL DAILY, INTRAVENOUS
     Route: 042
     Dates: start: 20040914
  2. TRASYLOL [Suspect]
     Indication: AORTIC ANEURYSM REPAIR
     Dosage: 1 ML, TOTAL DAILY, INTRAVENOUS
     Route: 042
     Dates: start: 20040914
  3. ANTIHYPERTENSIVES [Concomitant]
  4. HEPARIN [Concomitant]

REACTIONS (8)
  - DRUG HYPERSENSITIVITY [None]
  - FLUID IMBALANCE [None]
  - HEPARIN-INDUCED THROMBOCYTOPENIA [None]
  - HYPOTENSION [None]
  - MYOCARDIAL ISCHAEMIA [None]
  - POST PROCEDURAL COMPLICATION [None]
  - PROCEDURAL COMPLICATION [None]
  - PULMONARY HYPERTENSION [None]
